FAERS Safety Report 19908279 (Version 1)
Quarter: 2021Q4

REPORT INFORMATION
  Report Type: Spontaneous
  Country: JP (occurrence: JP)
  Receive Date: 20211002
  Receipt Date: 20211002
  Transmission Date: 20220304
  Serious: Yes (Death)
  Sender: FDA-Public Use
  Company Number: JP-SYNEX-T202104466

PATIENT

DRUGS (1)
  1. NITRIC OXIDE [Suspect]
     Active Substance: NITRIC OXIDE
     Indication: Pulmonary hypertension
     Dosage: UNK (INHALATION)
     Route: 055

REACTIONS (1)
  - Condition aggravated [Fatal]
